FAERS Safety Report 5000730-7 (Version None)
Quarter: 2006Q2

REPORT INFORMATION
  Report Type: 
  Country: None (occurrence: None)
  Receive Date: 20060512
  Receipt Date: 20060503
  Transmission Date: 20061013
  Serious: Yes (Other)
  Sender: FDA-Public Use
  Company Number: PHBS2006US06706

PATIENT
  Age: 40 Year
  Sex: Male

DRUGS (3)
  1. PREDNISONE TAB [Suspect]
     Indication: RENAL TRANSPLANT
     Dosage: 20 MG/D
     Route: 065
  2. NIFEDIPINE [Concomitant]
     Dosage: 60 MG/D
  3. CYCLOSPORINE [Suspect]
     Indication: RENAL TRANSPLANT
     Dosage: 200 MG/D
     Route: 065

REACTIONS (2)
  - CHORIORETINOPATHY [None]
  - SUBRETINAL FIBROSIS [None]
